FAERS Safety Report 13537707 (Version 3)
Quarter: 2017Q2

REPORT INFORMATION
  Report Type: Spontaneous
  Country: US (occurrence: US)
  Receive Date: 20170511
  Receipt Date: 20170616
  Transmission Date: 20170830
  Serious: Yes (Death, Hospitalization, Other)
  Sender: FDA-Public Use
  Company Number: US-ACTELION-A-NJ2017-153531

PATIENT
  Age: 70 Year
  Sex: Male

DRUGS (1)
  1. OPSUMIT [Suspect]
     Active Substance: MACITENTAN
     Indication: PORTOPULMONARY HYPERTENSION
     Dosage: 10 MG, QD
     Route: 048
     Dates: start: 20160103

REACTIONS (11)
  - Pulmonary arterial hypertension [Fatal]
  - Hepatic cirrhosis [Not Recovered/Not Resolved]
  - Cholelithiasis [Not Recovered/Not Resolved]
  - Disease complication [Fatal]
  - Bradycardia [Not Recovered/Not Resolved]
  - Hypotension [Fatal]
  - Cardiac output decreased [Not Recovered/Not Resolved]
  - Dyspnoea [Fatal]
  - Hypoxia [Fatal]
  - Blood bilirubin increased [Not Recovered/Not Resolved]
  - Prostatic specific antigen increased [Fatal]

NARRATIVE: CASE EVENT DATE: 20170329
